FAERS Safety Report 13110333 (Version 1)
Quarter: 2017Q1

REPORT INFORMATION
  Report Type: Spontaneous
  Country: US (occurrence: US)
  Receive Date: 20170112
  Receipt Date: 20170112
  Transmission Date: 20170428
  Serious: Yes (Other)
  Sender: FDA-Public Use
  Company Number: US-ROCHE-1097845

PATIENT
  Age: 45 Year
  Sex: Male

DRUGS (3)
  1. ACTIVASE [Suspect]
     Active Substance: ALTEPLASE
     Dosage: 20 MG OVER 2 HOURS
     Route: 041
  2. ACTIVASE [Suspect]
     Active Substance: ALTEPLASE
     Dosage: 50 MG OVER 1 HOUR
     Route: 041
  3. ACTIVASE [Suspect]
     Active Substance: ALTEPLASE
     Indication: MYOCARDIAL INFARCTION
     Route: 040

REACTIONS (2)
  - Extrasystoles [Unknown]
  - Hypotension [Unknown]
